FAERS Safety Report 8165450-9 (Version None)
Quarter: 2012Q1

REPORT INFORMATION
  Report Type: 
  Country: None (occurrence: None)
  Receive Date: 20120223
  Receipt Date: 20120223
  Transmission Date: 20120608
  Serious: Yes (Other)
  Sender: FDA-Public Use
  Company Number: None

PATIENT
  Age: 7 Year
  Sex: Male
  Weight: 28.8 kg

DRUGS (7)
  1. HYDROXYZINE [Concomitant]
  2. ZYRTEC [Concomitant]
  3. SINGULAIR [Suspect]
     Indication: CONJUNCTIVITIS
     Dosage: 5 MG QHS BY MOUTH 10/06-LOWER DOSE,10/08-THIS DOSE
     Route: 048
  4. SINGULAIR [Suspect]
     Indication: ASTHMA
     Dosage: 5 MG QHS BY MOUTH 10/06-LOWER DOSE,10/08-THIS DOSE
     Route: 048
  5. SINGULAIR [Suspect]
     Indication: RHINITIS ALLERGIC
     Dosage: 5 MG QHS BY MOUTH 10/06-LOWER DOSE,10/08-THIS DOSE
     Route: 048
  6. FLUTICASONE HFA [Concomitant]
  7. ALBUTEROL [Concomitant]

REACTIONS (6)
  - SUICIDAL IDEATION [None]
  - DEPRESSION [None]
  - DELUSION [None]
  - HALLUCINATION [None]
  - AGGRESSION [None]
  - NIGHTMARE [None]
